FAERS Safety Report 10196837 (Version 1)
Quarter: 2014Q2

REPORT INFORMATION
  Report Type: Spontaneous
  Country: US (occurrence: None)
  Receive Date: 20140523
  Receipt Date: 20140523
  Transmission Date: 20141212
  Serious: No
  Sender: FDA-Public Use
  Company Number: None

PATIENT
  Age: 45 Year
  Sex: Female
  Weight: 104.33 kg

DRUGS (2)
  1. CISPLATIN [Suspect]
  2. BACTRIM DS [Concomitant]

REACTIONS (1)
  - Neutrophil count decreased [None]
